FAERS Safety Report 9433638 (Version 2)
Quarter: 2013Q3

REPORT INFORMATION
  Report Type: Spontaneous
  Country: US (occurrence: US)
  Receive Date: 20130731
  Receipt Date: 20130905
  Transmission Date: 20140515
  Serious: Yes (Hospitalization)
  Sender: FDA-Public Use
  Company Number: US-VERTEX PHARMACEUTICALS INC-2013-008339

PATIENT
  Age: 60 Year
  Sex: Female

DRUGS (4)
  1. INCIVEK [Suspect]
     Indication: HEPATITIS C
     Dosage: 750 MG, TID
     Route: 048
     Dates: start: 20130715, end: 20130824
  2. RIBAVIRIN [Suspect]
     Indication: HEPATITIS C
     Dosage: 600 MG, BID
     Route: 048
     Dates: start: 20130715, end: 20130824
  3. RIBAVIRIN [Suspect]
     Dosage: 600 MG, QD
     Dates: end: 20130824
  4. PEGINTERFERON [Suspect]
     Indication: HEPATITIS C
     Dosage: 180 ?G, QW
     Route: 058
     Dates: start: 20130715, end: 20130824

REACTIONS (10)
  - Blood glucose increased [Not Recovered/Not Resolved]
  - Unevaluable event [Unknown]
  - Inappropriate schedule of drug administration [Unknown]
  - Axillary mass [Not Recovered/Not Resolved]
  - Furuncle [Not Recovered/Not Resolved]
  - Headache [Unknown]
  - Tearfulness [Unknown]
  - Haemoglobin decreased [Not Recovered/Not Resolved]
  - Vomiting [Not Recovered/Not Resolved]
  - Nausea [Not Recovered/Not Resolved]
